FAERS Safety Report 6906684-8 (Version None)
Quarter: 2010Q3

REPORT INFORMATION
  Report Type: 
  Country: None (occurrence: None)
  Receive Date: 20100804
  Receipt Date: 20100726
  Transmission Date: 20110219
  Serious: Yes (Hospitalization)
  Sender: FDA-Public Use
  Company Number: DE-AMGEN-QUU427950

PATIENT
  Age: 23 Year
  Sex: Female

DRUGS (2)
  1. ENBREL [Suspect]
     Indication: JUVENILE ARTHRITIS
     Route: 058
     Dates: start: 20050818
  2. LANTAREL [Suspect]
     Indication: JUVENILE ARTHRITIS
     Dosage: PRESUMABLY 15 MG PER WEEK

REACTIONS (2)
  - CYSTITIS INTERSTITIAL [None]
  - GASTROENTERITIS NOROVIRUS [None]
